FAERS Safety Report 9078880 (Version 1)
Quarter: 2013Q1

REPORT INFORMATION
  Report Type: Spontaneous
  Country: US (occurrence: US)
  Receive Date: 20130128
  Receipt Date: 20130128
  Transmission Date: 20140127
  Serious: Yes (Hospitalization, Other)
  Sender: FDA-Public Use
  Company Number: US-FOUGERA-2013FO000011

PATIENT
  Age: 60 Year
  Sex: Female
  Weight: 66.68 kg

DRUGS (11)
  1. TRIAMCINOLONE ACETONIDE [Suspect]
     Indication: PHOTOSENSITIVITY REACTION
     Route: 061
     Dates: start: 2010, end: 20101106
  2. TRIAMCINOLONE ACETONIDE [Suspect]
     Indication: ERYTHEMA MULTIFORME
     Route: 061
     Dates: start: 20101108, end: 20101112
  3. TERBINAFINE [Suspect]
     Indication: PHOTOSENSITIVITY REACTION
     Route: 048
  4. CORTICOSTEROIDS [Suspect]
     Indication: CONDITION AGGRAVATED
     Dates: start: 20101106
  5. PREDNISONE [Suspect]
     Indication: CONDITION AGGRAVATED
     Route: 048
     Dates: start: 20101106
  6. TRIAMCINOLONE [Suspect]
     Indication: ERYTHEMA MULTIFORME
     Dates: start: 20101108
  7. HYDROCHLOROTHIAZIDE [Concomitant]
     Indication: HYPERTENSION
  8. LISINOPRIL [Concomitant]
     Indication: HYPERTENSION
  9. METOPROLOL [Concomitant]
     Indication: HYPERTENSION
  10. SYNTHROID [Concomitant]
     Indication: HYPOTHYROIDISM
  11. LOVASTATIN [Concomitant]
     Indication: BLOOD CHOLESTEROL INCREASED

REACTIONS (4)
  - Photosensitivity reaction [Recovered/Resolved]
  - Condition aggravated [Recovered/Resolved]
  - Erythema multiforme [Recovered/Resolved]
  - Stevens-Johnson syndrome [Recovered/Resolved]
